FAERS Safety Report 8432867-4 (Version None)
Quarter: 2012Q2

REPORT INFORMATION
  Report Type: 
  Country: None (occurrence: None)
  Receive Date: 20120613
  Receipt Date: 20120530
  Transmission Date: 20120825
  Serious: No
  Sender: FDA-Public Use
  Company Number: JP-ROCHE-1063129

PATIENT
  Sex: Male

DRUGS (27)
  1. ACTEMRA [Suspect]
     Route: 041
     Dates: start: 20081202, end: 20081225
  2. ACTEMRA [Suspect]
     Route: 041
     Dates: start: 20100204, end: 20100513
  3. COTRIM [Concomitant]
     Indication: PROPHYLAXIS
     Route: 048
     Dates: start: 20080630
  4. ACTEMRA [Suspect]
     Indication: CASTLEMAN'S DISEASE
     Route: 041
     Dates: start: 20081006, end: 20081118
  5. ACTEMRA [Suspect]
     Route: 041
     Dates: start: 20090106, end: 20090204
  6. ACTEMRA [Suspect]
     Route: 041
     Dates: start: 20100707, end: 20120411
  7. RABEPRAZOLE SODIUM [Concomitant]
     Indication: PROPHYLAXIS
     Route: 048
     Dates: start: 20080630
  8. ACTEMRA [Suspect]
     Route: 041
     Dates: start: 20090709, end: 20091015
  9. ACTEMRA [Suspect]
     Route: 041
     Dates: start: 20091210, end: 20100114
  10. ACTEMRA [Suspect]
     Route: 041
     Dates: start: 20100526, end: 20100526
  11. PREDNISOLONE [Concomitant]
     Route: 048
     Dates: start: 20080811, end: 20081026
  12. PREDNISOLONE [Concomitant]
     Route: 048
     Dates: start: 20081027, end: 20101026
  13. VITAMIN B6 [Concomitant]
     Indication: PROPHYLAXIS
     Route: 048
     Dates: start: 20080630, end: 20080811
  14. PREDNISOLONE [Concomitant]
     Indication: CASTLEMAN'S DISEASE
     Route: 048
     Dates: start: 20080630, end: 20080810
  15. LEVOFLOXACIN [Concomitant]
     Indication: PROPHYLAXIS
     Route: 048
     Dates: start: 20080801
  16. ACTEMRA [Suspect]
     Route: 041
     Dates: start: 20091029, end: 20091119
  17. ACTEMRA [Suspect]
     Route: 041
     Dates: start: 20100623, end: 20100623
  18. PREDNISOLONE [Concomitant]
     Route: 048
     Dates: start: 20081027
  19. CANDESARTAN CILEXETIL [Concomitant]
     Indication: HYPERTENSION
     Route: 048
  20. DIOVAN [Concomitant]
     Indication: HYPERTENSION
     Route: 048
  21. ACTEMRA [Suspect]
     Route: 041
     Dates: start: 20090212, end: 20090625
  22. ACTEMRA [Suspect]
     Route: 041
     Dates: start: 20100610, end: 20100610
  23. AMLODIPINE [Concomitant]
     Indication: HYPERTENSION
     Route: 048
  24. ASPIRIN [Concomitant]
     Indication: PROPHYLAXIS
     Route: 048
  25. POLARAMINE [Concomitant]
     Indication: PROPHYLAXIS
     Dosage: IMMEDIATELY BEFORE ADMINISTERING OF [AKUTEMURA]
     Route: 048
     Dates: start: 20081020
  26. MEROPEN (JAPAN) [Concomitant]
     Indication: CASTLEMAN'S DISEASE
     Route: 041
     Dates: start: 20080618, end: 20080627
  27. ALENDRONATE SODIUM [Concomitant]
     Indication: PROPHYLAXIS
     Route: 048
     Dates: start: 20080702

REACTIONS (2)
  - RASH [None]
  - ERYTHEMA [None]
